FAERS Safety Report 5387573-X (Version None)
Quarter: 2007Q3

REPORT INFORMATION
  Report Type: 
  Country: None (occurrence: None)
  Receive Date: 20070711
  Receipt Date: 20070711
  Transmission Date: 20080115
  Serious: No
  Sender: FDA-Public Use
  Company Number: None

PATIENT
  Age: 49 Year
  Sex: Female
  Weight: 78.4723 kg

DRUGS (1)
  1. CRESTOR [Suspect]
     Indication: ANGIOGRAM ABNORMAL
     Dosage: 10 MG 1 DAILY
     Dates: start: 20061214, end: 20070404

REACTIONS (2)
  - LETHARGY [None]
  - PAIN IN EXTREMITY [None]
